FAERS Safety Report 6970894-4 (Version None)
Quarter: 2010Q3

REPORT INFORMATION
  Report Type: 
  Country: None (occurrence: None)
  Receive Date: 20100908
  Receipt Date: 20100830
  Transmission Date: 20110219
  Serious: No
  Sender: FDA-Public Use
  Company Number: BR-US-EMD SERONO, INC.-7016214

PATIENT
  Sex: Female

DRUGS (6)
  1. REBIF [Suspect]
     Indication: RELAPSING-REMITTING MULTIPLE SCLEROSIS
     Route: 058
     Dates: start: 20080707
  2. TRILEPTAL [Concomitant]
  3. ENALAPRIL [Concomitant]
  4. FLUOXETINE [Concomitant]
  5. ACETAMINOPHEN [Concomitant]
  6. RETEMIC [Concomitant]

REACTIONS (18)
  - ARTHRALGIA [None]
  - BACK PAIN [None]
  - BALANCE DISORDER [None]
  - CRYING [None]
  - DIZZINESS [None]
  - EATING DISORDER [None]
  - FATIGUE [None]
  - FEELING HOT [None]
  - HEADACHE [None]
  - MYALGIA [None]
  - NAUSEA [None]
  - NEUROSURGERY [None]
  - OEDEMA PERIPHERAL [None]
  - PAIN [None]
  - SENSORY DISTURBANCE [None]
  - SENSORY LEVEL ABNORMAL [None]
  - SOMNOLENCE [None]
  - VENOUS OCCLUSION [None]
